FAERS Safety Report 23976842 (Version 2)
Quarter: 2025Q3

REPORT INFORMATION
  Report Type: Report from Study
  Country: US (occurrence: US)
  Receive Date: 20240614
  Receipt Date: 20250717
  Transmission Date: 20251021
  Serious: Yes (Other)
  Sender: RANBAXY
  Company Number: US-SUN PHARMACEUTICAL INDUSTRIES LTD-2024R1-451220

PATIENT
  Age: 73 Year
  Sex: Female

DRUGS (1)
  1. HYDROXYCHLOROQUINE [Suspect]
     Active Substance: HYDROXYCHLOROQUINE
     Indication: Sjogren^s syndrome
     Dosage: 400 MILLIGRAM, DAILY
     Route: 065

REACTIONS (3)
  - Cardiotoxicity [Unknown]
  - Hypertrophic cardiomyopathy [Unknown]
  - Ventricular internal diameter abnormal [Unknown]
